FAERS Safety Report 7037548-X (Version None)
Quarter: 2010Q4

REPORT INFORMATION
  Report Type: 
  Country: None (occurrence: None)
  Receive Date: 20101011
  Receipt Date: 20101004
  Transmission Date: 20110411
  Serious: Yes (Death, Hospitalization)
  Sender: FDA-Public Use
  Company Number: TW-BAXTER-2010BH024566

PATIENT
  Sex: Female

DRUGS (6)
  1. DIANEAL [Suspect]
     Indication: PERITONEAL DIALYSIS
     Route: 033
     Dates: start: 20090301
  2. DIANEAL [Suspect]
     Route: 033
     Dates: start: 20090301
  3. DIANEAL [Suspect]
     Indication: PERITONEAL DIALYSIS
     Route: 033
     Dates: start: 20090301
  4. DIANEAL [Suspect]
     Route: 033
     Dates: start: 20090301
  5. EXTRANEAL [Suspect]
     Indication: PERITONEAL DIALYSIS
     Route: 033
     Dates: start: 20090301
  6. EXTRANEAL [Suspect]
     Route: 033
     Dates: start: 20090301

REACTIONS (1)
  - DEATH [None]
